FAERS Safety Report 4546692-8 (Version None)
Quarter: 2005Q1

REPORT INFORMATION
  Report Type: 
  Country: None (occurrence: None)
  Receive Date: 20050105
  Receipt Date: 20041220
  Transmission Date: 20050727
  Serious: Yes (Hospitalization)
  Sender: FDA-Public Use
  Company Number: DSA_25539_2004

PATIENT
  Age: 12 Month
  Sex: Male
  Weight: 9.65 kg

DRUGS (2)
  1. ENALAPRIL MALEATE [Suspect]
     Indication: RENAL HYPERTENSION
     Dosage: DF
  2. NIFEDIPINE [Suspect]
     Indication: RENAL HYPERTENSION
     Dosage: DF

REACTIONS (6)
  - CONDITION AGGRAVATED [None]
  - DEHYDRATION [None]
  - DRUG INEFFECTIVE [None]
  - RENAL EMBOLISM [None]
  - RENAL HYPERTENSION [None]
  - RENAL INFARCT [None]
